FAERS Safety Report 7012130-9 (Version None)
Quarter: 2010Q3

REPORT INFORMATION
  Report Type: 
  Country: None (occurrence: None)
  Receive Date: 20100922
  Receipt Date: 20100922
  Transmission Date: 20110219
  Serious: Yes (Other)
  Sender: FDA-Public Use
  Company Number: None

PATIENT
  Age: 35 Year
  Sex: Female
  Weight: 81.6475 kg

DRUGS (2)
  1. METHYLPREDNISOLONE ACETATE [Suspect]
     Indication: ARTHROPOD STING
     Dosage: 6 PILLS 1ST DAY, 5 PILLS 2ND DAY ETC  6 DAYS TAPERED
     Dates: start: 20100826, end: 20100901
  2. METHYLPREDNISOLONE ACETATE [Suspect]
     Indication: SWELLING
     Dosage: 6 PILLS 1ST DAY, 5 PILLS 2ND DAY ETC  6 DAYS TAPERED
     Dates: start: 20100826, end: 20100901

REACTIONS (3)
  - HYPOAESTHESIA [None]
  - MYALGIA [None]
  - PARAESTHESIA [None]
